FAERS Safety Report 9123853 (Version 4)
Quarter: 2013Q3

REPORT INFORMATION
  Report Type: Spontaneous
  Country: RU (occurrence: RU)
  Receive Date: 20130227
  Receipt Date: 20130705
  Transmission Date: 20140515
  Serious: Yes (Hospitalization)
  Sender: FDA-Public Use
  Company Number: RU-SANOFI-AVENTIS-2013SA015774

PATIENT
  Age: 71 Year
  Sex: Male
  Weight: 96 kg

DRUGS (2)
  1. PLAVIX [Suspect]
     Indication: THROMBOSIS PROPHYLAXIS
     Dosage: STRENGTH: 75 MG
     Route: 048
     Dates: start: 2013, end: 2013
  2. TICAGRELOR [Suspect]
     Indication: THROMBOSIS PROPHYLAXIS
     Dosage: STRENGTH: 300 MG
     Route: 048
     Dates: start: 2013, end: 2013

REACTIONS (2)
  - Coronary artery restenosis [Not Recovered/Not Resolved]
  - Product quality issue [Unknown]
